FAERS Safety Report 8895660 (Version 7)
Quarter: 2014Q1

REPORT INFORMATION
  Report Type: Spontaneous
  Country: US (occurrence: US)
  Receive Date: 20121108
  Receipt Date: 20140313
  Transmission Date: 20141002
  Serious: Yes (Hospitalization, Disabling, Other)
  Sender: FDA-Public Use
  Company Number: US-009507513-1210USA012653

PATIENT
  Sex: Female

DRUGS (8)
  1. FOSAMAX [Suspect]
     Indication: OSTEOPOROSIS
     Dosage: 70 MG, QW
     Route: 048
     Dates: start: 19960909, end: 200408
  2. FOSAMAX [Suspect]
     Dosage: 70 MG, QW
     Route: 048
     Dates: end: 200707
  3. ALENDRONATE SODIUM [Suspect]
     Indication: OSTEOPOROSIS
     Dosage: 70 MG, QW
     Route: 048
     Dates: start: 200806, end: 200808
  4. ALENDRONATE SODIUM [Suspect]
     Indication: OSTEOPOROSIS
     Dosage: 70 MG, QW
     Route: 048
     Dates: start: 200809, end: 200906
  5. ALENDRONATE SODIUM [Suspect]
     Indication: OSTEOPOROSIS
     Dosage: 70 MG, QW
     Route: 048
     Dates: start: 200907, end: 200911
  6. ALENDRONATE SODIUM [Suspect]
     Indication: OSTEOPOROSIS
     Dosage: 70 MG, QW
     Route: 048
     Dates: start: 200912, end: 201011
  7. FOSAMAX PLUS D [Suspect]
     Indication: OSTEOPOROSIS
     Dosage: 70 MG, UNK
     Route: 048
     Dates: start: 19960909, end: 20101110
  8. VITAMINS (UNSPECIFIED) [Concomitant]

REACTIONS (33)
  - Femur fracture [Not Recovered/Not Resolved]
  - Internal fixation of fracture [Not Recovered/Not Resolved]
  - Anaemia postoperative [Unknown]
  - Packed red blood cell transfusion [Unknown]
  - Hypotension [Unknown]
  - Hypoacusis [Unknown]
  - Knee arthroplasty [Unknown]
  - Internal fixation of fracture [Unknown]
  - Removal of internal fixation [Unknown]
  - Knee arthroplasty [Unknown]
  - Arthrofibrosis [Unknown]
  - Synovectomy [Unknown]
  - Osteoporosis [Unknown]
  - Dental implantation [Unknown]
  - Hypotension [Unknown]
  - Lymphoedema [Unknown]
  - Visual acuity reduced [Unknown]
  - Hypothyroidism [Unknown]
  - Cellulitis [Not Recovered/Not Resolved]
  - Hypertension [Unknown]
  - Migraine [Unknown]
  - Foot operation [Unknown]
  - Osteoarthritis [Unknown]
  - Hyperlipidaemia [Unknown]
  - Jaw disorder [Unknown]
  - Tooth disorder [Unknown]
  - Bundle branch block left [Unknown]
  - Fatigue [Unknown]
  - Tooth fracture [Unknown]
  - Dental caries [Unknown]
  - Dental caries [Unknown]
  - Malaise [Unknown]
  - Gastrooesophageal reflux disease [Unknown]
